FAERS Safety Report 20670523 (Version 2)
Quarter: 2022Q3

REPORT INFORMATION
  Report Type: Report from Study
  Country: US (occurrence: US)
  Receive Date: 20220404
  Receipt Date: 20220624
  Transmission Date: 20221027
  Serious: No
  Sender: FDA-Public Use
  Company Number: US-NOVARTISTESTPH-NVSC2022US076346

PATIENT
  Age: 55 Year
  Sex: Male

DRUGS (1)
  1. KESIMPTA [Suspect]
     Active Substance: OFATUMUMAB
     Indication: Multiple sclerosis
     Dosage: 20 MG, QW (20MG/0.4ML)
     Route: 058
     Dates: start: 20220401

REACTIONS (3)
  - Pain [Unknown]
  - Nasopharyngitis [Unknown]
  - Chills [Unknown]

NARRATIVE: CASE EVENT DATE: 20220401
